FAERS Safety Report 16468472 (Version 1)
Quarter: 2019Q2

REPORT INFORMATION
  Report Type: Report from Study
  Country: BE (occurrence: BE)
  Receive Date: 20190624
  Receipt Date: 20190624
  Transmission Date: 20190711
  Serious: Yes (Other)
  Sender: FDA-Public Use
  Company Number: BE-ROCHE-2338858

PATIENT
  Age: 58 Year
  Sex: Female
  Weight: 59.3 kg

DRUGS (20)
  1. PARACETAMOL [Concomitant]
     Active Substance: ACETAMINOPHEN
     Route: 042
     Dates: start: 20190527, end: 20190527
  2. MOVICOL [Concomitant]
     Active Substance: POLYETHYLENE GLYCOL 3350\POTASSIUM CHLORIDE\SODIUM BICARBONATE\SODIUM CHLORIDE
     Indication: CONSTIPATION
     Route: 065
     Dates: start: 201809
  3. NIQUITIN [NICOTINE] [Concomitant]
     Route: 065
     Dates: start: 20190416
  4. TAVEGYL [Concomitant]
     Active Substance: CLEMASTINE FUMARATE
     Dosage: 2 MG/2 ML
     Route: 042
     Dates: start: 20190527, end: 20190527
  5. PARACETAMOL [Concomitant]
     Active Substance: ACETAMINOPHEN
     Route: 042
     Dates: start: 20190415, end: 20190415
  6. LITICAN [ALIZAPRIDE HYDROCHLORIDE] [Concomitant]
     Route: 065
     Dates: start: 20190527, end: 20190527
  7. NORMAL SALINE [Concomitant]
     Active Substance: SODIUM CHLORIDE
     Route: 065
     Dates: start: 20190527, end: 20190527
  8. RO6874281 (FAP IL2V MAB) [Suspect]
     Active Substance: RO-6874281
     Indication: OESOPHAGEAL SQUAMOUS CELL CARCINOMA
     Dosage: MOST RECENT DOSE (5 MG) ON 27/MAY/2019 AT 13:25
     Route: 042
     Dates: start: 20190415
  9. PANTOPRAZOLE [Concomitant]
     Active Substance: PANTOPRAZOLE
     Route: 065
     Dates: start: 20190305
  10. ATEZOLIZUMAB. [Suspect]
     Active Substance: ATEZOLIZUMAB
     Indication: OESOPHAGEAL SQUAMOUS CELL CARCINOMA
     Dosage: MOST RECENT DOSE ON 27/MAY/2019 AT 11:50
     Route: 042
     Dates: start: 20190415
  11. PARACETAMOL [Concomitant]
     Active Substance: ACETAMINOPHEN
     Route: 065
     Dates: start: 20190301
  12. PARACETAMOL [Concomitant]
     Active Substance: ACETAMINOPHEN
     Route: 042
     Dates: start: 20190506, end: 20190506
  13. ZANTAC [Concomitant]
     Active Substance: RANITIDINE HYDROCHLORIDE
     Route: 042
     Dates: start: 20190506, end: 20190506
  14. ZANTAC [Concomitant]
     Active Substance: RANITIDINE HYDROCHLORIDE
     Route: 042
     Dates: start: 20190527, end: 20190527
  15. NIQUITIN [NICOTINE] [Concomitant]
     Route: 065
     Dates: start: 201811, end: 20190415
  16. TAVEGYL [Concomitant]
     Active Substance: CLEMASTINE FUMARATE
     Dosage: 2 MG/2 ML
     Route: 042
     Dates: start: 20190415, end: 20190415
  17. PARACETAMOL [Concomitant]
     Active Substance: ACETAMINOPHEN
     Indication: TUMOUR PAIN
     Route: 065
     Dates: start: 201809, end: 20190228
  18. TAVEGYL [Concomitant]
     Active Substance: CLEMASTINE FUMARATE
     Dosage: 2 MG/2 ML
     Route: 042
     Dates: start: 20190506, end: 20190506
  19. LITICAN [ALIZAPRIDE HYDROCHLORIDE] [Concomitant]
     Route: 042
     Dates: start: 20190506, end: 20190506
  20. DENTIO [Concomitant]
     Indication: PERIODONTAL DISEASE
     Route: 065
     Dates: start: 201809

REACTIONS (1)
  - Lymphocyte count decreased [Recovered/Resolved]

NARRATIVE: CASE EVENT DATE: 20190528
